FAERS Safety Report 4591075-8 (Version None)
Quarter: 2005Q1

REPORT INFORMATION
  Report Type: 
  Country: None (occurrence: None)
  Receive Date: 20050225
  Receipt Date: 20050216
  Transmission Date: 20050727
  Serious: Yes (Hospitalization)
  Sender: FDA-Public Use
  Company Number: 200510403EU

PATIENT
  Age: 19 Year
  Sex: Male

DRUGS (2)
  1. KETEK [Suspect]
     Indication: TONSILLAR DISORDER
     Route: 048
     Dates: start: 20050201
  2. METHYLPREDNISOLONE [Concomitant]

REACTIONS (2)
  - ASTHENIA [None]
  - HYPOKALAEMIA [None]
